FAERS Safety Report 21448432 (Version 4)
Quarter: 2022Q4

REPORT INFORMATION
  Report Type: Spontaneous
  Country: JP (occurrence: JP)
  Receive Date: 20221013
  Receipt Date: 20221212
  Transmission Date: 20230112
  Serious: Yes (Other)
  Sender: FDA-Public Use
  Company Number: JP-MSD-M2022-43122

PATIENT
  Age: 52 Year
  Sex: Male
  Weight: 57 kg

DRUGS (5)
  1. LAGEVRIO [Suspect]
     Active Substance: MOLNUPIRAVIR
     Indication: COVID-19 treatment
     Dosage: 800 MILLIGRAM, BID
     Route: 048
     Dates: start: 20221003, end: 20221006
  2. HERBALS [Suspect]
     Active Substance: HERBALS
     Indication: Upper respiratory tract inflammation
     Dosage: 6 DOSAGE FORM, TID
     Route: 048
     Dates: start: 20221003, end: 20221006
  3. LOXOPROFEN SODIUM [Suspect]
     Active Substance: LOXOPROFEN SODIUM
     Indication: Upper respiratory tract inflammation
     Dosage: 60 MILLIGRAM, PRN
     Route: 048
     Dates: start: 20221003
  4. REBAMIPIDE [Suspect]
     Active Substance: REBAMIPIDE
     Indication: Gastritis
     Dosage: 100 MILLIGRAM, PRN
     Route: 048
     Dates: start: 20221003
  5. NAUZELIN [Suspect]
     Active Substance: DOMPERIDONE
     Dosage: UNK UNK, PRN
     Route: 048
     Dates: start: 20221003

REACTIONS (2)
  - Rash [Recovered/Resolved]
  - Pruritus [Recovered/Resolved]

NARRATIVE: CASE EVENT DATE: 20221003
